FAERS Safety Report 6121466-5 (Version None)
Quarter: 2009Q1

REPORT INFORMATION
  Report Type: 
  Country: None (occurrence: None)
  Receive Date: 20090313
  Receipt Date: 20090313
  Transmission Date: 20090719
  Serious: No
  Sender: FDA-Public Use
  Company Number: None

PATIENT
  Age: 15 Year
  Sex: Male
  Weight: 79.3795 kg

DRUGS (1)
  1. DEPAKOTE [Suspect]
     Indication: BIPOLAR DISORDER
     Dosage: 500MG BID PO
     Route: 048
     Dates: start: 20090205, end: 20090312

REACTIONS (3)
  - AGGRESSION [None]
  - ANGER [None]
  - PRODUCT QUALITY ISSUE [None]
